FAERS Safety Report 4707712-0 (Version None)
Quarter: 2005Q2

REPORT INFORMATION
  Report Type: 
  Country: None (occurrence: None)
  Receive Date: 20050629
  Receipt Date: 20050418
  Transmission Date: 20051028
  Serious: No
  Sender: FDA-Public Use
  Company Number: 05P-163-0297677-00

PATIENT
  Age: 29 Year
  Sex: Female
  Weight: 62.1428 kg

DRUGS (2)
  1. HUMIRA [Suspect]
     Indication: RHEUMATOID ARTHRITIS
     Dosage: 40 MG, 1 IN 2 WK, SUBCUTANEOUS
     Route: 058
     Dates: start: 20050406
  2. BIRTH CONTROL PILL [Concomitant]

REACTIONS (1)
  - HEADACHE [None]
